FAERS Safety Report 9437996 (Version 1)
Quarter: 2013Q3

REPORT INFORMATION
  Report Type: Spontaneous
  Country: US (occurrence: US)
  Receive Date: 20130802
  Receipt Date: 20130802
  Transmission Date: 20140515
  Serious: Yes (Other)
  Sender: FDA-Public Use
  Company Number: US-BRISTOL-MYERS SQUIBB COMPANY-16692329

PATIENT
  Age: 74 Year
  Sex: Female
  Weight: 79.36 kg

DRUGS (1)
  1. COUMADIN [Suspect]

REACTIONS (6)
  - Pharyngeal oedema [Unknown]
  - Lip swelling [Unknown]
  - Dysphagia [Recovering/Resolving]
  - Lip blister [Recovered/Resolved]
  - Dizziness [Recovering/Resolving]
  - Malaise [Unknown]
